FAERS Safety Report 17559410 (Version 1)
Quarter: 2020Q1

REPORT INFORMATION
  Report Type: Spontaneous
  Country: ES (occurrence: ES)
  Receive Date: 20200319
  Receipt Date: 20200319
  Transmission Date: 20200409
  Serious: Yes (Other)
  Sender: FDA-Public Use
  Company Number: ES-009507513-2003ESP003537

PATIENT
  Age: 47 Year
  Sex: Male
  Weight: 104 kg

DRUGS (2)
  1. INEGY 10MG/20MG COMPRIMIDOS [Suspect]
     Active Substance: EZETIMIBE\SIMVASTATIN
     Indication: DYSLIPIDAEMIA
     Dosage: START DATE: 03-FEB-2017; FREQUENCY: 1/24 HOURS; STRENGTH: 10 MG/20 MG; 100 TABLETS
     Route: 048
     Dates: end: 20180829
  2. EZETIMIBE (+) ROSUVASTATIN CALCIUM [Suspect]
     Active Substance: EZETIMIBE\ROSUVASTATIN
     Indication: DYSLIPIDAEMIA
     Dosage: STARTE DATE: 30-AUG-2018, FREQUENCY: 1/24 HOURS; STRENGTH: 10 MG/10 MG; 30 TABLETS
     Route: 048

REACTIONS (2)
  - Hypertriglyceridaemia [Not Recovered/Not Resolved]
  - Hypertransaminasaemia [Not Recovered/Not Resolved]

NARRATIVE: CASE EVENT DATE: 2016
